FAERS Safety Report 10870400 (Version 1)
Quarter: 2015Q1

REPORT INFORMATION
  Report Type: Spontaneous
  Country: CA (occurrence: CA)
  Receive Date: 20150226
  Receipt Date: 20150226
  Transmission Date: 20150721
  Serious: Yes (Other)
  Sender: FDA-Public Use
  Company Number: CA-JNJFOC-20150219050

PATIENT

DRUGS (2)
  1. INDOMETHACIN. [Suspect]
     Active Substance: INDOMETHACIN
     Indication: PATENT DUCTUS ARTERIOSUS
     Route: 065
  2. IBUPROFEN. [Suspect]
     Active Substance: IBUPROFEN
     Indication: PATENT DUCTUS ARTERIOSUS
     Route: 065

REACTIONS (5)
  - Intestinal perforation [Unknown]
  - Renal impairment [Unknown]
  - Necrotising colitis [Unknown]
  - Gastrointestinal haemorrhage [Unknown]
  - Off label use [Unknown]
